FAERS Safety Report 5248554-X (Version None)
Quarter: 2007Q1

REPORT INFORMATION
  Report Type: 
  Country: None (occurrence: None)
  Receive Date: 20070227
  Receipt Date: 20070215
  Transmission Date: 20070707
  Serious: Yes (Hospitalization)
  Sender: FDA-Public Use
  Company Number: GB-PFIZER INC-2007013592

PATIENT
  Sex: Male
  Weight: 75.3 kg

DRUGS (4)
  1. SU-011,248 [Suspect]
     Indication: RENAL CELL CARCINOMA STAGE UNSPECIFIED
     Route: 048
  2. E45 [Concomitant]
  3. OMEPRAZOLE [Concomitant]
     Route: 048
     Dates: start: 20050101
  4. CHLORPHENIRAMINE MALEATE [Concomitant]
     Route: 048
     Dates: start: 20061129

REACTIONS (1)
  - CHEST PAIN [None]
